FAERS Safety Report 21147682 (Version 4)
Quarter: 2022Q4

REPORT INFORMATION
  Report Type: Spontaneous
  Country: GR (occurrence: GR)
  Receive Date: 20220729
  Receipt Date: 20221114
  Transmission Date: 20230113
  Serious: Yes (Disabling, Other)
  Sender: FDA-Public Use
  Company Number: GR-ORPHALAN-GR-ORP-22-00014

PATIENT

DRUGS (3)
  1. TRIENTINE TETRAHYDROCHLORIDE [Suspect]
     Active Substance: TRIENTINE TETRAHYDROCHLORIDE
     Indication: Hepato-lenticular degeneration
     Dosage: 3 DOSAGE FORM, QD
     Route: 048
     Dates: start: 20211005, end: 20220704
  2. TRIENTINE TETRAHYDROCHLORIDE [Suspect]
     Active Substance: TRIENTINE TETRAHYDROCHLORIDE
     Dosage: 1 DOSAGE FORM, QD
     Route: 048
     Dates: start: 20220704, end: 202207
  3. WILZIN [Concomitant]
     Active Substance: ZINC ACETATE
     Indication: Hepato-lenticular degeneration
     Dosage: 1 DOSAGE FORM, QD
     Dates: start: 2015

REACTIONS (6)
  - Tremor [Recovered/Resolved]
  - Muscle spasms [Recovered/Resolved]
  - Vomiting [Recovered/Resolved]
  - Gait disturbance [Not Recovered/Not Resolved]
  - Off label use [Unknown]
  - Therapy cessation [Unknown]

NARRATIVE: CASE EVENT DATE: 20211005
